FAERS Safety Report 23267856 (Version 1)
Quarter: 2023Q4

REPORT INFORMATION
  Report Type: Spontaneous
  Country: US (occurrence: None)
  Receive Date: 20231205
  Receipt Date: 20231205
  Transmission Date: 20240110
  Serious: No
  Sender: FDA-Public Use
  Company Number: None

PATIENT
  Age: 65 Year
  Sex: Male
  Weight: 74.25 kg

DRUGS (2)
  1. LUPRON DEPOT [Suspect]
     Active Substance: LEUPROLIDE ACETATE
     Indication: Injection
     Dates: start: 20231201, end: 20231201
  2. LUPRON DEPOT [Suspect]
     Active Substance: LEUPROLIDE ACETATE
     Indication: Prostate cancer

REACTIONS (12)
  - Dysuria [None]
  - Nervousness [None]
  - Sleep disorder [None]
  - Nausea [None]
  - Dizziness [None]
  - Vertigo [None]
  - Delirium [None]
  - Suicidal ideation [None]
  - Dizziness [None]
  - Incoherent [None]
  - Cognitive disorder [None]
  - Panic reaction [None]

NARRATIVE: CASE EVENT DATE: 20231201
